FAERS Safety Report 6962010-X (Version None)
Quarter: 2010Q3

REPORT INFORMATION
  Report Type: 
  Country: None (occurrence: None)
  Receive Date: 20100902
  Receipt Date: 20100824
  Transmission Date: 20110219
  Serious: Yes (Other)
  Sender: FDA-Public Use
  Company Number: US-NOVOPROD-313803

PATIENT
  Sex: Female

DRUGS (17)
  1. VICTOZA [Suspect]
     Indication: TYPE 2 DIABETES MELLITUS
     Dosage: 0.6 MG, QD
     Route: 058
     Dates: start: 20100806, end: 20100812
  2. VICTOZA [Suspect]
     Dosage: 1.2 MG, QD
     Route: 058
     Dates: start: 20100813, end: 20100820
  3. VICTOZA [Suspect]
     Dosage: 1.8 MG, QD
     Route: 058
     Dates: start: 20100821
  4. LEVEMIR [Concomitant]
     Indication: TYPE 2 DIABETES MELLITUS
     Dosage: UNK
     Route: 058
     Dates: start: 20080101
  5. ACTOS [Concomitant]
     Indication: TYPE 2 DIABETES MELLITUS
  6. METFORMIN [Concomitant]
     Indication: TYPE 2 DIABETES MELLITUS
     Dosage: UNK
     Route: 048
  7. ENALAPRIL [Concomitant]
     Indication: CARDIOMYOPATHY
     Dosage: UNK
     Route: 048
  8. COREG CR [Concomitant]
     Indication: CARDIOMYOPATHY
     Dosage: UNK
     Route: 048
  9. COZAAR [Concomitant]
     Dosage: UNK
     Route: 048
  10. HYDRALAZINE [Concomitant]
     Indication: CARDIOMYOPATHY
     Dosage: UNK
     Route: 048
  11. TORSEMIDE [Concomitant]
     Indication: CARDIAC FAILURE CONGESTIVE
     Dosage: UNK
     Route: 048
  12. KLOR-CON [Concomitant]
     Indication: SUPPLEMENTATION THERAPY
     Dosage: UNK
     Route: 048
  13. LANOXIN [Concomitant]
     Indication: CARDIAC FAILURE CONGESTIVE
     Dosage: UNK
     Route: 048
  14. SIMVASTATIN [Concomitant]
     Indication: CARDIAC FAILURE CONGESTIVE
     Dosage: UNK
     Route: 048
  15. SINGULAIR [Concomitant]
     Indication: PROPHYLAXIS
     Dosage: UNK
     Route: 048
  16. ZYRTEC [Concomitant]
     Indication: HYPERSENSITIVITY
     Dosage: UNK
     Route: 048
  17. LEVOXYL [Concomitant]
     Dosage: 75 UG, QD
     Route: 048

REACTIONS (6)
  - CARDIOMYOPATHY [None]
  - DIARRHOEA [None]
  - DYSPEPSIA [None]
  - HEADACHE [None]
  - NAUSEA [None]
  - TREMOR [None]
